FAERS Safety Report 5066303-5 (Version None)
Quarter: 2006Q3

REPORT INFORMATION
  Report Type: 
  Country: None (occurrence: None)
  Receive Date: 20060728
  Receipt Date: 20060718
  Transmission Date: 20061208
  Serious: No
  Sender: FDA-Public Use
  Company Number: 2006-07-0173

PATIENT
  Age: 54 Year
  Sex: Male
  Weight: 91.173 kg

DRUGS (9)
  1. PEG-INTRON [Suspect]
     Indication: HEPATITIS C
     Dosage: 150 MCG QWK SUBCUTANEOUS
     Route: 058
     Dates: start: 20060428
  2. RIBAVIRIN [Suspect]
     Indication: HEPATITIS C
     Dosage: ORAL
     Route: 048
     Dates: start: 20060428
  3. AMARYL [Concomitant]
  4. GLUCOPHAGE [Concomitant]
  5. NAPROXEN [Concomitant]
  6. PROTONIX (PANTOPRAZOLE SODIUM) TABLETS [Concomitant]
  7. LISINOPRIL [Concomitant]
  8. HYDROCHLOROTHIAZIDE WITH TRIAMTERENE TABLETS [Concomitant]
  9. OMEPRAZOLE [Concomitant]

REACTIONS (3)
  - ASTHMA [None]
  - FATIGUE [None]
  - NAUSEA [None]
